FAERS Safety Report 6807110-X (Version None)
Quarter: 2010Q2

REPORT INFORMATION
  Report Type: 
  Country: None (occurrence: None)
  Receive Date: 20100628
  Receipt Date: 20100628
  Transmission Date: 20101027
  Serious: Yes (Other)
  Sender: FDA-Public Use
  Company Number: None

PATIENT
  Age: 22 Year
  Sex: Female
  Weight: 90.7194 kg

DRUGS (1)
  1. MIRENA [Suspect]
     Indication: CONTRACEPTION

REACTIONS (8)
  - ABNORMAL BEHAVIOUR [None]
  - ACNE [None]
  - BACK PAIN [None]
  - DEPRESSION [None]
  - JOB DISSATISFACTION [None]
  - MIGRAINE [None]
  - SUICIDAL IDEATION [None]
  - WEIGHT INCREASED [None]
